FAERS Safety Report 6963524-9 (Version None)
Quarter: 2010Q3

REPORT INFORMATION
  Report Type: 
  Country: None (occurrence: None)
  Receive Date: 20100823
  Receipt Date: 20100630
  Transmission Date: 20110219
  Serious: No
  Sender: FDA-Public Use
  Company Number: 012913

PATIENT
  Sex: Female
  Weight: 74.5 kg

DRUGS (10)
  1. CIMZIA [Suspect]
     Indication: CROHN'S DISEASE
     Dosage: (400 MG 1X/4 WEEKS)
     Dates: start: 20100301
  2. IMURAN [Concomitant]
  3. REMERON [Concomitant]
  4. CLOMIPRAMINE [Concomitant]
  5. PHENERGAN /00404701/ [Concomitant]
  6. DARVOCET [Concomitant]
  7. MS CONTIN [Concomitant]
  8. LASIX [Concomitant]
  9. METOPROLOL [Concomitant]
  10. ATIVAN [Concomitant]

REACTIONS (5)
  - FAECAL INCONTINENCE [None]
  - FREQUENT BOWEL MOVEMENTS [None]
  - JOINT SWELLING [None]
  - MUCOUS STOOLS [None]
  - OEDEMA PERIPHERAL [None]
